FAERS Safety Report 17018176 (Version 1)
Quarter: 2019Q4

REPORT INFORMATION
  Report Type: Spontaneous
  Country: US (occurrence: US)
  Receive Date: 20191111
  Receipt Date: 20191111
  Transmission Date: 20200122
  Serious: Yes (Other)
  Sender: FDA-Public Use
  Company Number: US-AKRON, INC.-2076703

PATIENT
  Age: 69 Year
  Sex: Female
  Weight: 80 kg

DRUGS (1)
  1. INDOCYANINE GREEN, INJECTION, USP [Suspect]
     Active Substance: INDOCYANINE GREEN
     Indication: ANGIOGRAM
     Route: 042

REACTIONS (1)
  - Procedural hypotension [Recovered/Resolved]
